FAERS Safety Report 8186985-9 (Version None)
Quarter: 2012Q1

REPORT INFORMATION
  Report Type: 
  Country: None (occurrence: None)
  Receive Date: 20120306
  Receipt Date: 20120222
  Transmission Date: 20120608
  Serious: Yes (Other)
  Sender: FDA-Public Use
  Company Number: JP-UCBSA-048400

PATIENT
  Age: 34 Year
  Sex: Female

DRUGS (6)
  1. PATANOL [Concomitant]
     Indication: CONJUNCTIVITIS ALLERGIC
     Dosage: DOSAGE FORM: DRPP
     Route: 031
     Dates: start: 20110601
  2. XYZAL [Suspect]
     Indication: RHINITIS SEASONAL
     Dosage: AT BEDTIME
     Route: 048
     Dates: start: 20110601, end: 20110602
  3. FLUNASE [Concomitant]
     Dosage: 2 DOSAGE FORM
     Route: 045
  4. FLUOROMETHOLONE [Concomitant]
     Indication: CONJUNCTIVITIS ALLERGIC
     Dosage: DOSAGE FORM: DRPP
     Route: 031
     Dates: start: 20110601
  5. FLUNASE [Concomitant]
     Route: 045
     Dates: start: 20110323, end: 20110401
  6. FLUNASE [Concomitant]
     Indication: RHINITIS SEASONAL
     Dosage: DOSE: 1 DOSAGE FORM
     Route: 045
     Dates: start: 20110608

REACTIONS (2)
  - ABORTION SPONTANEOUS [None]
  - MATERNAL EXPOSURE DURING PREGNANCY [None]
